FAERS Safety Report 7388313-5 (Version None)
Quarter: 2011Q2

REPORT INFORMATION
  Report Type: 
  Country: None (occurrence: None)
  Receive Date: 20110401
  Receipt Date: 20110318
  Transmission Date: 20111010
  Serious: Yes (Other)
  Sender: FDA-Public Use
  Company Number: US-ASTRAZENECA-2007UW05887

PATIENT
  Age: 43 Year
  Sex: Male
  Weight: 99.8 kg

DRUGS (7)
  1. SEROQUEL [Suspect]
     Indication: ANXIETY
     Route: 048
     Dates: start: 20040420, end: 20050201
  2. ABILIFY [Concomitant]
     Dates: start: 20100701, end: 20101201
  3. ATIVAN [Concomitant]
     Dosage: 1-3 MG
     Dates: start: 20050101
  4. SEROQUEL [Suspect]
     Indication: SLEEP DISORDER
     Route: 048
     Dates: start: 20040420, end: 20050201
  5. GEODON [Concomitant]
     Dates: start: 20050101
  6. LORAZEPAM [Concomitant]
     Dates: start: 20050101
  7. CELEXA [Concomitant]
     Dates: start: 20050101

REACTIONS (4)
  - DIABETIC COMA [None]
  - METABOLIC SYNDROME [None]
  - PANCREATITIS ACUTE [None]
  - TYPE 2 DIABETES MELLITUS [None]
